FAERS Safety Report 8098629-5 (Version None)
Quarter: 2012Q1

REPORT INFORMATION
  Report Type: 
  Country: None (occurrence: None)
  Receive Date: 20120129
  Receipt Date: 20111020
  Transmission Date: 20120608
  Serious: Yes (Hospitalization)
  Sender: FDA-Public Use
  Company Number: US-ABBOTT-11P-163-0867681-00

PATIENT
  Age: 64 Year
  Sex: Female

DRUGS (18)
  1. PREDNISONE TAB [Concomitant]
     Indication: INFLAMMATION
  2. HUMALOG [Concomitant]
     Indication: DIABETES MELLITUS
     Dates: start: 19970101
  3. UNKNOWN INSULIN [Concomitant]
     Indication: DIABETES MELLITUS
     Dates: start: 19970101
  4. ZYPREXA [Concomitant]
     Indication: BLOOD PRESSURE
  5. DILEXA [Concomitant]
     Indication: PRODUCT USED FOR UNKNOWN INDICATION
  6. VITAMIN D [Concomitant]
     Indication: PRODUCT USED FOR UNKNOWN INDICATION
  7. FOSAMAX [Concomitant]
     Indication: PRODUCT USED FOR UNKNOWN INDICATION
  8. HUMIRA [Suspect]
     Indication: RHEUMATOID ARTHRITIS
     Dates: start: 20090101, end: 20110601
  9. WELLBUTRIN [Concomitant]
     Indication: PRODUCT USED FOR UNKNOWN INDICATION
  10. HYDROLOZINE [Concomitant]
     Indication: BLOOD PRESSURE
  11. VITAMIN B-12 [Concomitant]
     Indication: ANAEMIA
  12. ASPIRIN [Concomitant]
     Indication: PRODUCT USED FOR UNKNOWN INDICATION
  13. SIMVASTATIN [Concomitant]
     Indication: PRODUCT USED FOR UNKNOWN INDICATION
  14. NIACIN [Concomitant]
     Indication: PRODUCT USED FOR UNKNOWN INDICATION
  15. NORVASC [Concomitant]
     Indication: BLOOD PRESSURE
  16. GABAPENTIN [Concomitant]
     Indication: PRODUCT USED FOR UNKNOWN INDICATION
  17. IMURAN [Concomitant]
     Indication: BLOOD PRESSURE
  18. XANDANE [Concomitant]
     Indication: MUSCLE RELAXANT THERAPY

REACTIONS (5)
  - SINUSITIS [None]
  - SEPSIS [None]
  - BRONCHITIS [None]
  - CELLULITIS [None]
  - CYSTITIS [None]
